FAERS Safety Report 8543241-4 (Version None)
Quarter: 2012Q3

REPORT INFORMATION
  Report Type: 
  Country: None (occurrence: None)
  Receive Date: 20120716
  Receipt Date: 20120702
  Transmission Date: 20120928
  Serious: Yes (Other)
  Sender: FDA-Public Use
  Company Number: IPC201207-000307

PATIENT
  Age: 79 Year
  Sex: Female
  Weight: 49.4421 kg

DRUGS (5)
  1. ASPIRIN [Suspect]
     Dates: start: 20120628, end: 20120630
  2. BENICAR WITH ^WATER PILL^ [Concomitant]
  3. METOPROLOL TARTRATE [Suspect]
     Indication: MYOCARDIAL INFARCTION
     Dosage: 25 MG (12.5 MG 2 TIMES PER DAY), ORAL
     Route: 048
     Dates: start: 20120628
  4. ARMOR THYROID [Concomitant]
  5. HORMONES [Concomitant]

REACTIONS (8)
  - NIGHT SWEATS [None]
  - DIARRHOEA [None]
  - FATIGUE [None]
  - NERVOUS SYSTEM DISORDER [None]
  - FAECAL INCONTINENCE [None]
  - SOMNOLENCE [None]
  - ABNORMAL DREAMS [None]
  - DYSURIA [None]
